FAERS Safety Report 13772012 (Version 3)
Quarter: 2017Q3

REPORT INFORMATION
  Report Type: Report from Study
  Country: CA (occurrence: CA)
  Receive Date: 20170720
  Receipt Date: 20170725
  Transmission Date: 20171127
  Serious: Yes (Hospitalization, Other)
  Sender: FDA-Public Use
  Company Number: PHHY2017CA104806

PATIENT
  Age: 77 Year
  Sex: Male
  Weight: 83.37 kg

DRUGS (7)
  1. ENTRESTO [Suspect]
     Active Substance: SACUBITRIL\VALSARTAN
     Indication: CARDIAC FAILURE CONGESTIVE
     Dosage: 2 DF, (49/51 MG)
     Route: 048
     Dates: start: 20170406, end: 20170509
  2. SOTALOL. [Concomitant]
     Active Substance: SOTALOL
     Indication: CARDIAC FAILURE
     Dosage: 160 MG, UNK
     Route: 048
  3. ENTRESTO [Suspect]
     Active Substance: SACUBITRIL\VALSARTAN
     Dosage: 2 DF, (97/103 MG)
     Route: 048
     Dates: start: 20170509
  4. XARELTO [Concomitant]
     Active Substance: RIVAROXABAN
     Indication: CARDIAC FAILURE
     Dosage: 15 MG, UNK
     Route: 048
     Dates: end: 20170710
  5. PRAVASTATIN. [Concomitant]
     Active Substance: PRAVASTATIN
     Indication: CARDIAC FAILURE
     Dosage: 20 MG, UNK
     Route: 048
  6. FUROSEMIDE. [Concomitant]
     Active Substance: FUROSEMIDE
     Indication: CARDIAC FAILURE
     Dosage: 80 MG, UNK
     Route: 048
     Dates: end: 20170710
  7. PANTOPRAZOL [Concomitant]
     Active Substance: PANTOPRAZOLE SODIUM
     Indication: CARDIAC FAILURE
     Dosage: 80 MG, UNK
     Route: 042
     Dates: start: 20170710, end: 20170710

REACTIONS (17)
  - Decreased appetite [Recovering/Resolving]
  - Polyp [Recovered/Resolved]
  - Diverticulum [Unknown]
  - Oesophageal ulcer [Unknown]
  - Muscular weakness [Unknown]
  - Gastrointestinal ulcer [Unknown]
  - Oesophagitis [Unknown]
  - Haematochezia [Recovered/Resolved]
  - Gastritis erosive [Unknown]
  - Duodenitis [Unknown]
  - Hypovolaemia [Unknown]
  - Gastrointestinal haemorrhage [Recovered/Resolved]
  - Renal impairment [Recovered/Resolved]
  - Diarrhoea [Recovering/Resolving]
  - Fatigue [Unknown]
  - Syncope [Recovered/Resolved]
  - Haemorrhoids [Unknown]

NARRATIVE: CASE EVENT DATE: 20170509
